FAERS Safety Report 5345067-1 (Version None)
Quarter: 2007Q2

REPORT INFORMATION
  Report Type: 
  Country: None (occurrence: None)
  Receive Date: 20070426
  Receipt Date: 20070128
  Transmission Date: 20071010
  Serious: Yes (Other)
  Sender: FDA-Public Use
  Company Number: 2007007666

PATIENT
  Age: 16 Year
  Sex: Female
  Weight: 32.2 kg

DRUGS (3)
  1. GENOTROPIN [Suspect]
     Indication: GROWTH HORMONE DEFICIENCY
     Dosage: 2 MG (2 MG,1 IN 1 D)
     Dates: start: 20061101, end: 20070122
  2. PREDNISONE TAB [Concomitant]
  3. LEVOXYL [Concomitant]

REACTIONS (3)
  - BRAIN OEDEMA [None]
  - HEADACHE [None]
  - VISION BLURRED [None]
